FAERS Safety Report 19436243 (Version 2)
Quarter: 2023Q1

REPORT INFORMATION
  Report Type: Spontaneous
  Country: FI (occurrence: None)
  Receive Date: 20210618
  Receipt Date: 20230316
  Transmission Date: 20230418
  Serious: Yes (Hospitalization)
  Sender: FDA-Public Use
  Company Number: 2021A516258

PATIENT
  Sex: Male

DRUGS (1)
  1. QUETIAPINE FUMARATE [Suspect]
     Active Substance: QUETIAPINE FUMARATE
     Route: 064

REACTIONS (4)
  - Maternal exposure during pregnancy [Not Recovered/Not Resolved]
  - Tremor neonatal [Not Recovered/Not Resolved]
  - Cerebral haemorrhage neonatal [Not Recovered/Not Resolved]
  - Poor feeding infant [Not Recovered/Not Resolved]

NARRATIVE: CASE EVENT DATE: 20210525
